FAERS Safety Report 12356682 (Version 1)
Quarter: 2016Q2

REPORT INFORMATION
  Report Type: Spontaneous
  Country: CH (occurrence: CH)
  Receive Date: 20160511
  Receipt Date: 20160511
  Transmission Date: 20160815
  Serious: Yes (Congenital Anomaly)
  Sender: FDA-Public Use
  Company Number: CH-SA-2016SA088948

PATIENT
  Age: 0 Day
  Sex: Female
  Weight: 3.72 kg

DRUGS (3)
  1. XANAX [Suspect]
     Active Substance: ALPRAZOLAM
     Route: 064
  2. ETIZOLAM [Suspect]
     Active Substance: ETIZOLAM
     Route: 064
  3. STILNOX [Suspect]
     Active Substance: ZOLPIDEM TARTRATE
     Route: 064

REACTIONS (2)
  - Haemangioma [Unknown]
  - Exposure during pregnancy [Unknown]

NARRATIVE: CASE EVENT DATE: 20160108
